FAERS Safety Report 15437459 (Version 1)
Quarter: 2018Q3

REPORT INFORMATION
  Report Type: Spontaneous
  Country: US (occurrence: US)
  Receive Date: 20180927
  Receipt Date: 20180927
  Transmission Date: 20181010
  Serious: No
  Sender: FDA-Public Use
  Company Number: US-AMGEN-USASP2017180803

PATIENT
  Age: 32 Year
  Sex: Male

DRUGS (1)
  1. XGEVA [Suspect]
     Active Substance: DENOSUMAB
     Indication: FIBROUS DYSPLASIA OF BONE
     Dosage: UNK, EVERY OTHER 2 MONTHS
     Route: 058

REACTIONS (1)
  - Off label use [Unknown]
